FAERS Safety Report 19946050 (Version 11)
Quarter: 2024Q4

REPORT INFORMATION
  Report Type: Spontaneous
  Country: US (occurrence: US)
  Receive Date: 20211012
  Receipt Date: 20241008
  Transmission Date: 20250115
  Serious: Yes (Hospitalization, Disabling, Other)
  Sender: ORGANON
  Company Number: US-ORGANON-O2110USA000830

PATIENT
  Sex: Male

DRUGS (6)
  1. SINGULAIR [Suspect]
     Active Substance: MONTELUKAST SODIUM
     Indication: Asthma
     Dosage: 10 MILLIGRAM
     Route: 048
     Dates: start: 2011, end: 2020
  2. SINGULAIR [Suspect]
     Active Substance: MONTELUKAST SODIUM
     Indication: Hypersensitivity
     Dosage: 10 MILLIGRAM, QD
     Route: 048
     Dates: start: 20190314, end: 20201202
  3. XANAX [Suspect]
     Active Substance: ALPRAZOLAM
     Dosage: UNK
     Route: 065
  4. PANTOPRAZOLE [Concomitant]
     Active Substance: PANTOPRAZOLE
     Indication: Gastrooesophageal reflux disease
     Dosage: 40 MILLIGRAM
     Dates: start: 2012
  5. FLUTICASONE [Concomitant]
     Active Substance: FLUTICASONE
     Indication: Hypersensitivity
     Dosage: 50 MILLIGRAM
     Dates: start: 2021
  6. TADALAFIL [Concomitant]
     Active Substance: TADALAFIL
     Indication: Prostatomegaly
     Dosage: 5 MILLIGRAM
     Dates: start: 2021

REACTIONS (57)
  - Suicidal ideation [Not Recovered/Not Resolved]
  - Cognitive disorder [Not Recovered/Not Resolved]
  - Neuropsychological symptoms [Not Recovered/Not Resolved]
  - Major depression [Not Recovered/Not Resolved]
  - Drug dependence [Unknown]
  - Hallucination, visual [Unknown]
  - Retinal haemorrhage [Unknown]
  - Neovascular age-related macular degeneration [Unknown]
  - Craniocerebral injury [Unknown]
  - Depression [Not Recovered/Not Resolved]
  - Bipolar disorder [Unknown]
  - Drug abuse [Unknown]
  - Generalised anxiety disorder [Recovered/Resolved]
  - Sleep disorder [Not Recovered/Not Resolved]
  - Dysphemia [Unknown]
  - Depression [Not Recovered/Not Resolved]
  - Personality disorder [Unknown]
  - Reactive psychosis [Unknown]
  - Memory impairment [Unknown]
  - Post-traumatic stress disorder [Recovering/Resolving]
  - Phonophobia [Unknown]
  - Disturbance in attention [Unknown]
  - Vision blurred [Unknown]
  - Generalised anxiety disorder [Recovering/Resolving]
  - Brain fog [Unknown]
  - Somnolence [Unknown]
  - Persistent depressive disorder [Recovering/Resolving]
  - Anger [Unknown]
  - Insomnia [Unknown]
  - Decreased interest [Unknown]
  - Feeling guilty [Unknown]
  - Feelings of worthlessness [Unknown]
  - Helplessness [Unknown]
  - Depressed mood [Unknown]
  - Anhedonia [Unknown]
  - Psychomotor hyperactivity [Unknown]
  - Anxiety [Unknown]
  - Confusional state [Unknown]
  - Emotional distress [Unknown]
  - Tachyphrenia [Unknown]
  - Nausea [Unknown]
  - Migraine without aura [Unknown]
  - Visual impairment [Unknown]
  - Photophobia [Unknown]
  - Essential hypertension [Unknown]
  - Humerus fracture [Unknown]
  - Fall [Unknown]
  - Liver function test increased [Unknown]
  - Muscle spasms [Unknown]
  - Hypercholesterolaemia [Unknown]
  - Gastrooesophageal reflux disease [Unknown]
  - Abdominal pain lower [Unknown]
  - Fatigue [Unknown]
  - Arthralgia [Unknown]
  - Pain in extremity [Unknown]
  - Ear disorder [Unknown]
  - Appetite disorder [Unknown]
